FAERS Safety Report 15612409 (Version 1)
Quarter: 2018Q4

REPORT INFORMATION
  Report Type: Spontaneous
  Country: IT (occurrence: IT)
  Receive Date: 20181113
  Receipt Date: 20181113
  Transmission Date: 20190205
  Serious: Yes (Death, Hospitalization, Other)
  Sender: FDA-Public Use
  Company Number: IT-ASTRAZENECA-2018SF46226

PATIENT
  Age: 51 Year
  Sex: Female

DRUGS (3)
  1. OLAPARIB. [Suspect]
     Active Substance: OLAPARIB
     Route: 048
  2. OLAPARIB. [Suspect]
     Active Substance: OLAPARIB
     Route: 048
     Dates: start: 201702
  3. OLAPARIB. [Suspect]
     Active Substance: OLAPARIB
     Route: 048
     Dates: start: 20160401, end: 20170201

REACTIONS (10)
  - Alanine aminotransferase increased [Unknown]
  - Thrombocytopenia [Unknown]
  - Lung disorder [Unknown]
  - Fatigue [Unknown]
  - Metastases to liver [Unknown]
  - Aspartate aminotransferase increased [Unknown]
  - Malignant neoplasm progression [Unknown]
  - Respiratory failure [Fatal]
  - Liver disorder [Unknown]
  - Nausea [Unknown]
